FAERS Safety Report 9382794 (Version 1)
Quarter: 2013Q3

REPORT INFORMATION
  Report Type: Spontaneous
  Country: GR (occurrence: GR)
  Receive Date: 20130703
  Receipt Date: 20130703
  Transmission Date: 20140515
  Serious: Yes (Other)
  Sender: FDA-Public Use
  Company Number: GR-UCBSA-090310

PATIENT
  Age: 80 Year
  Sex: Female

DRUGS (3)
  1. KEPPRA [Suspect]
     Indication: EPILEPSY
     Dosage: DAILY
     Route: 048
     Dates: start: 2011, end: 201306
  2. RISPERIDONE [Suspect]
     Dates: start: 201306, end: 201306
  3. LYRICA [Concomitant]
     Indication: EPILEPSY
     Route: 048

REACTIONS (2)
  - Skin necrosis [Recovered/Resolved]
  - Syncope [Recovered/Resolved]
